FAERS Safety Report 5601673-8 (Version None)
Quarter: 2008Q1

REPORT INFORMATION
  Report Type: 
  Country: None (occurrence: None)
  Receive Date: 20080124
  Receipt Date: 20080117
  Transmission Date: 20080703
  Serious: Yes (Other)
  Sender: FDA-Public Use
  Company Number: US-GILEAD-2007-0013953

PATIENT
  Sex: Female
  Weight: 70.37 kg

DRUGS (3)
  1. LETAIRIS [Suspect]
     Indication: PULMONARY HYPERTENSION
     Route: 048
     Dates: start: 20070828
  2. PROCARDIA XL [Concomitant]
     Indication: ESSENTIAL HYPERTENSION
     Route: 048
  3. WARFARIN SODIUM [Concomitant]
     Indication: ANTICOAGULANT THERAPY
     Route: 048

REACTIONS (3)
  - NASAL CONGESTION [None]
  - OEDEMA PERIPHERAL [None]
  - TINNITUS [None]
